FAERS Safety Report 7580016-7 (Version None)
Quarter: 2011Q2

REPORT INFORMATION
  Report Type: 
  Country: None (occurrence: None)
  Receive Date: 20110629
  Receipt Date: 20110621
  Transmission Date: 20111010
  Serious: Yes (Death, Hospitalization)
  Sender: FDA-Public Use
  Company Number: JP-BRISTOL-MYERS SQUIBB COMPANY-15853351

PATIENT
  Age: 41 Year
  Sex: Female
  Weight: 45 kg

DRUGS (3)
  1. ABILIFY [Suspect]
     Dosage: ABILIFY ORAL SOLUTION 0.1% PERCENT, DOSING IS: 12MG -BID FROM15-17JUN201.144 MG-17JUN2011
     Route: 048
     Dates: start: 20110615, end: 20110617
  2. RISPERDAL [Suspect]
     Dosage: TAB
     Route: 048
     Dates: start: 20110618, end: 20110619
  3. LENDORMIN [Suspect]
     Dosage: TABS; DOSING: IS 0.25MG /DAYFROM15-17JUN201.3 MG-17JUN2011
     Route: 048
     Dates: start: 20110615, end: 20110617

REACTIONS (6)
  - COMPLETED SUICIDE [None]
  - HALLUCINATION, AUDITORY [None]
  - LETHARGY [None]
  - MULTIPLE DRUG OVERDOSE INTENTIONAL [None]
  - INTENTIONAL OVERDOSE [None]
  - ASPHYXIA [None]
